FAERS Safety Report 10343302 (Version 3)
Quarter: 2014Q3

REPORT INFORMATION
  Report Type: Report from Study
  Country: AU (occurrence: AU)
  Receive Date: 20140725
  Receipt Date: 20140828
  Transmission Date: 20150326
  Serious: Yes (Death, Other)
  Sender: FDA-Public Use
  Company Number: AU-ASTRAZENECA-2013SE56427

PATIENT
  Age: 32780 Day
  Sex: Male

DRUGS (8)
  1. FUROSEMIDE. [Concomitant]
     Active Substance: FUROSEMIDE
  2. SOLPRIN [Concomitant]
     Dosage: 1/2 X SOLPRIN
  3. ZOLADEX [Suspect]
     Active Substance: GOSERELIN ACETATE
     Indication: PROSTATE CANCER
     Route: 058
     Dates: start: 20121018
  4. ACTONEL [Concomitant]
     Active Substance: RISEDRONATE SODIUM
     Dosage: EC COMBI
  5. SIMVASTATIN. [Concomitant]
     Active Substance: SIMVASTATIN
  6. PANADOL [Concomitant]
     Active Substance: ACETAMINOPHEN
  7. CYPROCUR [Concomitant]
  8. SOMAC [Concomitant]
     Active Substance: PANTOPRAZOLE SODIUM

REACTIONS (2)
  - Malignant neoplasm progression [Unknown]
  - Death [Fatal]

NARRATIVE: CASE EVENT DATE: 20140426
